FAERS Safety Report 8493865 (Version 4)
Quarter: 2012Q4

REPORT INFORMATION
  Report Type: Spontaneous
  Country: US (occurrence: None)
  Receive Date: 20120316
  Receipt Date: 20121004
  Transmission Date: 20130627
  Serious: Yes (Hospitalization)
  Sender: FDA-Public Use
  Company Number: 2011027307

PATIENT
  Age: 45 Year
  Sex: Female
  Weight: 113.4 kg

DRUGS (49)
  1. HIZENTRA [Suspect]
     Indication: HYPOGAMMAGLOBULINAEMIA
     Dosage: SEE IMAGE
     Route: 058
     Dates: start: 20110103
  2. HIZENTRA [Suspect]
     Indication: HYPOGAMMAGLOBULINAEMIA
     Dosage: SEE IMAGE
     Route: 058
     Dates: start: 20111214, end: 20111214
  3. HIZENTRA [Suspect]
     Indication: HYPOGAMMAGLOBULINAEMIA
     Dosage: SEE IMAGE
     Route: 058
     Dates: start: 20110103
  4. PROVENTIL [Concomitant]
  5. CYMBALTA [Concomitant]
  6. COREG [Concomitant]
  7. PHENERGAN [Concomitant]
  8. ATIVAN [Concomitant]
  9. AMBIEN [Concomitant]
  10. CYTOTEC [Concomitant]
  11. MS CONTIN [Concomitant]
  12. ACETAMINOPHEN [Concomitant]
  13. SYNTHROID [Concomitant]
  14. ANTVERT (MECLOZINE) [Concomitant]
  15. NORVASC [Concomitant]
  16. LOVENOX [Concomitant]
  17. ALLEGRA [Concomitant]
  18. LEVEMIR [Concomitant]
  19. FLONASE NASAL SPRAY (FLUTICASONE PROPIONATE) [Concomitant]
  20. ADVAIR DISKUS [Concomitant]
  21. NEXIUM [Concomitant]
  22. HYDROCHLOROTHIAZIDE [Concomitant]
  23. ZANAFLEX [Concomitant]
  24. CLONIDINE TRANSDERMAL SYSTEM [Concomitant]
  25. ZETIA [Concomitant]
  26. TIGAN [Concomitant]
  27. ENOXAPARIN SODIUM [Concomitant]
  28. LIBRAX [Concomitant]
  29. MIRAPEX [Concomitant]
  30. LISINOPRIL [Concomitant]
  31. XYZAL (LEVOCETIRIZINE HYDROCHLORIDE) [Concomitant]
  32. SOMA [Concomitant]
  33. CRESTOR [Concomitant]
  34. OXYCODONE HYDROCHLORIDE [Concomitant]
  35. DOMPERIDONE (DOMPERIDONE) [Concomitant]
  36. OXYGEN (OXYGEN) [Concomitant]
  37. CARAFATE [Concomitant]
  38. TUSSIONEX (TUSSIONEX /00140501/) [Concomitant]
  39. TIROSINT (LEVOTHYROXINE) [Concomitant]
  40. PERCOCET [Concomitant]
  41. FENOFIBRATE [Concomitant]
  42. LASIX [Concomitant]
  43. ASTEPRO [Concomitant]
  44. XALATAN [Concomitant]
  45. TRUSOPT [Concomitant]
  46. HUMULIN (INSULIN HUMAN) [Concomitant]
  47. BENADRYL (DIPHENHYDRAMINE HYDROCHLORIDE) [Concomitant]
  48. LIDOCAINE PRILOCAINE (EMLA) [Concomitant]
  49. LIDOCAINE (LIDOCAINE) [Concomitant]

REACTIONS (7)
  - Infusion site extravasation [None]
  - Infusion site urticaria [None]
  - Infusion site swelling [None]
  - Infusion site erythema [None]
  - Infusion site reaction [None]
  - Bronchitis [None]
  - Cellulitis [None]
